FAERS Safety Report 8850263 (Version 1)
Quarter: 2012Q4

REPORT INFORMATION
  Report Type: 
  Country: FR (occurrence: FR)
  Receive Date: 20121019
  Receipt Date: 20121019
  Transmission Date: 20130627
  Serious: Yes (Hospitalization)
  Sender: FDA-Public Use
  Company Number: FR-BAXTER-2012BAX019533

PATIENT
  Age: 53 Year
  Sex: Male

DRUGS (2)
  1. HOLOXAN 2000 MG, POUDRE POUR USAGE PARENT?RAL [Suspect]
     Indication: DRUG USE FOR UNKNOWN INDICATION
     Route: 042
     Dates: start: 20120824, end: 20120824
  2. DOXORUBICIN [Suspect]
     Indication: DRUG USE FOR UNKNOWN INDICATION
     Route: 042
     Dates: start: 20120823, end: 20120823

REACTIONS (2)
  - Respiratory distress [Recovered/Resolved]
  - Arrhythmia supraventricular [Recovered/Resolved]
